FAERS Safety Report 7487582-0 (Version None)
Quarter: 2011Q2

REPORT INFORMATION
  Report Type: 
  Country: None (occurrence: None)
  Receive Date: 20110518
  Receipt Date: 20110512
  Transmission Date: 20111010
  Serious: Yes (Death, Other)
  Sender: FDA-Public Use
  Company Number: VE-ELI_LILLY_AND_COMPANY-VE201105003838

PATIENT
  Age: 54 Year
  Sex: Female

DRUGS (5)
  1. ZOMETA [Concomitant]
     Dosage: UNK, UNKNOWN
     Route: 042
     Dates: start: 20110408
  2. FOLIC ACID [Concomitant]
     Dosage: UNK, UNKNOWN
     Route: 065
  3. VITAMIN B12                        /00056201/ [Concomitant]
     Dosage: UNK, UNKNOWN
     Route: 065
  4. DEXAMETHASONE [Concomitant]
     Dosage: UNK, UNKNOWN
     Route: 065
  5. ALIMTA [Suspect]
     Indication: METASTATIC NEOPLASM
     Dosage: UNK, UNKNOWN
     Route: 065

REACTIONS (5)
  - ACUTE RESPIRATORY FAILURE [None]
  - THROMBOCYTOPENIA [None]
  - ANAEMIA [None]
  - NEUTROPENIA [None]
  - OFF LABEL USE [None]
